FAERS Safety Report 24803028 (Version 1)
Quarter: 2025Q1

REPORT INFORMATION
  Report Type: Spontaneous
  Country: US (occurrence: US)
  Receive Date: 20250103
  Receipt Date: 20250103
  Transmission Date: 20250409
  Serious: No
  Sender: Kenvue
  Company Number: US-KENVUE-20241202524

PATIENT
  Sex: Female

DRUGS (1)
  1. TYLENOL 8 HR ARTHRITIS PAIN [Suspect]
     Active Substance: ACETAMINOPHEN
     Indication: Product use in unapproved indication
     Dosage: 2 DOSAGE FORM, ONCE A DAY (AT NIGHT)
     Route: 065

REACTIONS (1)
  - Inappropriate schedule of product administration [Unknown]
